FAERS Safety Report 15289648 (Version 2)
Quarter: 2018Q4

REPORT INFORMATION
  Report Type: Spontaneous
  Country: DK (occurrence: DK)
  Receive Date: 20180817
  Receipt Date: 20180817
  Transmission Date: 20190204
  Serious: Yes (Hospitalization)
  Sender: FDA-Public Use
  Company Number: DK-PFIZER INC-2018328119

PATIENT
  Age: 75 Year
  Sex: Female

DRUGS (17)
  1. OXYCODON ACTAVIS [Interacting]
     Active Substance: OXYCODONE
     Indication: BACK PAIN
     Dosage: DOSE: 1 TABLET AS NEEDED MAX X 6
     Route: 048
     Dates: start: 2017, end: 20180712
  2. OXYCODON LANNACHER [Interacting]
     Active Substance: OXYCODONE
     Indication: BACK PAIN
     Dosage: 60 MG, 1X/DAY
     Route: 048
     Dates: start: 2017
  3. DULCOLAX NOS [Concomitant]
     Active Substance: BISACODYL OR DOCUSATE SODIUM
     Indication: CONSTIPATION
     Dosage: 10 MG, ALTERNATE DAY
     Route: 054
     Dates: start: 20180212
  4. OXABENZ [Interacting]
     Active Substance: OXAZEPAM
     Indication: ANXIETY
     Dosage: 15 MG, 1X/DAY
     Route: 048
     Dates: start: 20180703, end: 20180712
  5. LAXOBERAL [Concomitant]
     Active Substance: SODIUM PICOSULFATE
     Indication: CONSTIPATION
     Dosage: 10 GTT, AS NEEDED
     Route: 048
     Dates: start: 20180703
  6. METOPROLOLSUCCINAT HEXAL [Concomitant]
     Active Substance: METOPROLOL SUCCINATE
     Indication: ATRIAL FIBRILLATION
     Dosage: 12.5 MG, 1X/DAY
     Route: 048
     Dates: start: 20180604
  7. CALCICHEW-D3 FORTE [Concomitant]
     Active Substance: CALCIUM\CHOLECALCIFEROL
     Indication: OSTEOPOROSIS
     Dosage: 2 DF, 1X/DAY (STRENGTH: 500MG + 10 MICROGRAM)
     Route: 048
     Dates: start: 20171109, end: 20180710
  8. OXYCODON LANNACHER [Interacting]
     Active Substance: OXYCODONE
     Dosage: UNK
     Route: 048
  9. METADON DAK [Interacting]
     Active Substance: METHADONE HYDROCHLORIDE
     Dosage: UNK
     Route: 048
  10. CORDARONE X [Suspect]
     Active Substance: AMIODARONE HYDROCHLORIDE
     Indication: ARRHYTHMIA
     Dosage: 100 MG, 1X/DAY
     Route: 048
     Dates: start: 20121122
  11. SIMVASTATIN ORION [Concomitant]
     Active Substance: SIMVASTATIN
     Indication: HYPERCHOLESTEROLAEMIA
     Dosage: 40 MG, 1X/DAY
     Route: 048
     Dates: start: 20180521, end: 20180710
  12. OMEPRAZOL ACTAVIS [Concomitant]
     Active Substance: OMEPRAZOLE
     Indication: GASTROOESOPHAGEAL REFLUX DISEASE
     Dosage: 40 MG, 1X/DAY
     Route: 048
     Dates: start: 20180522
  13. RAMIPRIL HEXAL [Concomitant]
     Active Substance: RAMIPRIL
     Indication: HYPERTENSION
     Dosage: 2.5 MG, 1X/DAY
     Route: 048
     Dates: start: 20140209
  14. MOVICOL [Concomitant]
     Active Substance: POLYETHYLENE GLYCOL 3350\POTASSIUM CHLORIDE\SODIUM BICARBONATE\SODIUM CHLORIDE
     Indication: CONSTIPATION
     Dosage: 1 DF, ALTERNATE DAY
     Route: 048
     Dates: start: 20161213
  15. TEMESTA (LORAZEPAM) [Interacting]
     Active Substance: LORAZEPAM
     Indication: ANXIETY
     Dosage: 1.5 MG, DAILY ((DOSIS: 1 TABLET X 3 + PN MAX X 3, STYRKE: 1MG)
     Route: 048
     Dates: start: 20180621, end: 20180713
  16. METADON DAK [Interacting]
     Active Substance: METHADONE HYDROCHLORIDE
     Indication: BACK PAIN
     Dosage: 45 MG, 1X/DAY
     Route: 048
     Dates: start: 20180219
  17. XARELTO [Concomitant]
     Active Substance: RIVAROXABAN
     Indication: ATRIAL FIBRILLATION
     Dosage: 20 MG, 1X/DAY
     Route: 048
     Dates: start: 20140625

REACTIONS (2)
  - Drug interaction [Unknown]
  - Delirium [Recovering/Resolving]

NARRATIVE: CASE EVENT DATE: 201806
